FAERS Safety Report 8925056 (Version 1)
Quarter: 2012Q4

REPORT INFORMATION
  Report Type: 
  Country: DK (occurrence: DK)
  Receive Date: 20121126
  Receipt Date: 20121126
  Transmission Date: 20130627
  Serious: Yes (Life-Threatening, Hospitalization, Disabling, Other)
  Sender: FDA-Public Use
  Company Number: DK-ROCHE-300141

PATIENT
  Age: 47 Year
  Sex: Male

DRUGS (2)
  1. ROCEPHALIN [Suspect]
     Indication: MENINGITIS PNEUMOCOCCAL
     Route: 042
     Dates: start: 20010511, end: 20010520
  2. PREDNISOLONE [Concomitant]

REACTIONS (8)
  - Coombs positive haemolytic anaemia [Not Recovered/Not Resolved]
  - Renal impairment [Not Recovered/Not Resolved]
  - No reaction on previous exposure to drug [Unknown]
  - Anaphylactic shock [Unknown]
  - Jaundice [Unknown]
  - Kidney infection [Unknown]
  - Pruritus [Unknown]
  - Rash [Unknown]
